FAERS Safety Report 23374701 (Version 1)
Quarter: 2024Q1

REPORT INFORMATION
  Report Type: Report from Study
  Country: US (occurrence: US)
  Receive Date: 20240105
  Receipt Date: 20240105
  Transmission Date: 20240409
  Serious: Yes (Other)
  Sender: FDA-Public Use
  Company Number: US-ABBVIE-5571160

PATIENT
  Sex: Female

DRUGS (1)
  1. UBRELVY [Suspect]
     Active Substance: UBROGEPANT
     Indication: Product used for unknown indication
     Route: 048

REACTIONS (3)
  - Habitual abortion [Unknown]
  - Vomiting [Recovered/Resolved with Sequelae]
  - Maternal exposure during pregnancy [Unknown]

NARRATIVE: CASE EVENT DATE: 20220112
